FAERS Safety Report 5041058-9 (Version None)
Quarter: 2006Q2

REPORT INFORMATION
  Report Type: 
  Country: None (occurrence: None)
  Receive Date: 20060630
  Receipt Date: 20060630
  Transmission Date: 20061013
  Serious: Yes (Other)
  Sender: FDA-Public Use
  Company Number: None

PATIENT
  Age: 41 Year
  Sex: Male
  Weight: 83.4619 kg

DRUGS (1)
  1. ENBREL [Suspect]
     Indication: PSORIATIC ARTHROPATHY
     Dosage: 50 MG WEEKLY SQ
     Route: 058
     Dates: start: 20030501, end: 20050820

REACTIONS (3)
  - HYPOAESTHESIA [None]
  - PERONEAL NERVE PALSY [None]
  - POEMS SYNDROME [None]
